FAERS Safety Report 19969159 (Version 1)
Quarter: 2021Q4

REPORT INFORMATION
  Report Type: Spontaneous
  Country: US (occurrence: US)
  Receive Date: 20211019
  Receipt Date: 20211019
  Transmission Date: 20220303
  Serious: No
  Sender: FDA-Public Use
  Company Number: US-PFIZER INC-202100970133

PATIENT
  Age: 47 Year
  Sex: Male
  Weight: 113.4 kg

DRUGS (1)
  1. CHANTIX [Suspect]
     Active Substance: VARENICLINE TARTRATE
     Indication: Smoking cessation therapy
     Dosage: 1 MG

REACTIONS (12)
  - Illness [Unknown]
  - Abnormal dreams [Unknown]
  - Insomnia [Unknown]
  - Sleep disorder [Unknown]
  - Arthralgia [Unknown]
  - Constipation [Unknown]
  - Fatigue [Unknown]
  - Psychotic disorder [Unknown]
  - Depression [Unknown]
  - Contusion [Unknown]
  - Back pain [Unknown]
  - Pain in extremity [Unknown]
